FAERS Safety Report 23558266 (Version 2)
Quarter: 2024Q1

REPORT INFORMATION
  Report Type: Spontaneous
  Country: US (occurrence: US)
  Receive Date: 20240223
  Receipt Date: 20240322
  Transmission Date: 20240410
  Serious: No
  Sender: FDA-Public Use
  Company Number: US-GLAXOSMITHKLINE-US2024020570

PATIENT
  Sex: Female
  Weight: 54.9 kg

DRUGS (2)
  1. ZEJULA [Suspect]
     Active Substance: NIRAPARIB
     Indication: Ovarian cancer
     Dosage: 200 MG, QD  (2 OF THE 100MG TAB)
     Route: 048
     Dates: start: 20240124
  2. ZEJULA [Suspect]
     Active Substance: NIRAPARIB
     Dosage: 200 MG, QD
     Route: 048

REACTIONS (9)
  - Blood pressure increased [Unknown]
  - Increased appetite [Unknown]
  - Insomnia [Unknown]
  - Constipation [Unknown]
  - Dry mouth [Unknown]
  - Abdominal distension [Unknown]
  - Platelet count increased [Unknown]
  - Red blood cell count decreased [Unknown]
  - White blood cell count decreased [Unknown]
